FAERS Safety Report 7787035-6 (Version None)
Quarter: 2011Q3

REPORT INFORMATION
  Report Type: 
  Country: None (occurrence: None)
  Receive Date: 20110929
  Receipt Date: 20110919
  Transmission Date: 20111222
  Serious: Yes (Hospitalization)
  Sender: FDA-Public Use
  Company Number: US-BAYER-2011-016184

PATIENT
  Age: 27 Year
  Sex: Female
  Weight: 120.18 kg

DRUGS (4)
  1. YAZ [Suspect]
     Indication: CONTRACEPTION
     Dosage: UNK
     Route: 048
     Dates: start: 20080301, end: 20090101
  2. YASMIN [Suspect]
     Indication: CONTRACEPTION
     Dosage: UNK
     Route: 048
     Dates: start: 20070801, end: 20080201
  3. YASMIN [Suspect]
     Indication: ACNE
  4. YAZ [Suspect]
     Indication: ACNE

REACTIONS (5)
  - CHOLELITHIASIS [None]
  - INJURY [None]
  - SCAR [None]
  - ANXIETY [None]
  - PAIN [None]
